FAERS Safety Report 7982062-8 (Version None)
Quarter: 2011Q4

REPORT INFORMATION
  Report Type: 
  Country: None (occurrence: None)
  Receive Date: 20111215
  Receipt Date: 20111012
  Transmission Date: 20120403
  Serious: Yes (Disabling, Other)
  Sender: FDA-Public Use
  Company Number: FR-ASTELLAS-2011EU009131

PATIENT
  Sex: Male
  Weight: 110 kg

DRUGS (6)
  1. MYCOPHENOLATE MOFETIL (CELLCEPT) [Concomitant]
     Indication: PROPHYLAXIS AGAINST TRANSPLANT REJECTION
     Dosage: 1500 MG, UNKNOWN/D
     Route: 048
     Dates: start: 20051207
  2. PANTOPRAZOLE SODIUM [Concomitant]
     Indication: ANTACID THERAPY
     Dosage: 40 MG, UNKNOWN/D
     Route: 048
     Dates: start: 20051207
  3. ASPEGIC 325 [Concomitant]
     Indication: PLATELET AGGREGATION INHIBITION
     Dosage: 250 MG, UNKNOWN/D
     Route: 048
     Dates: start: 20051207
  4. PROGRAF [Suspect]
     Dosage: 2 MG, UNKNOWN/D
     Route: 048
  5. TACROLIMUS [Suspect]
     Indication: PROPHYLAXIS AGAINST TRANSPLANT REJECTION
     Dosage: 2 MG, UID/QD
     Route: 048
     Dates: start: 20110901, end: 20111205
  6. LAMIVUDINE [Concomitant]
     Indication: ANTIVIRAL TREATMENT
     Dosage: 100 MG, UNKNOWN/D
     Route: 048
     Dates: start: 20051207

REACTIONS (3)
  - DRY SKIN [None]
  - ADVERSE DRUG REACTION [None]
  - PSORIASIS [None]
